FAERS Safety Report 8887472 (Version 1)
Quarter: 2012Q4

REPORT INFORMATION
  Report Type: Spontaneous
  Country: KR (occurrence: None)
  Receive Date: 20121031
  Receipt Date: 20121031
  Transmission Date: 20130627
  Serious: Yes (Other)
  Sender: FDA-Public Use
  Company Number: 2012P1061124

PATIENT
  Age: 72 Year
  Sex: Male

DRUGS (3)
  1. AMOXICILLIN [Suspect]
     Indication: HELICOBACTER PYLORI INFECTION
  2. OMEPRAZOLE [Suspect]
     Indication: HELICOBACTER PYLORI INFECTION
     Dosage: 20 MG; BID;
  3. CLARITHROMYCIN [Suspect]
     Indication: HELICOBACTER PYLORI INFECTION

REACTIONS (4)
  - Dysphagia [None]
  - Dyspepsia [None]
  - Regurgitation [None]
  - Gastrooesophageal reflux disease [None]
